FAERS Safety Report 25226694 (Version 2)
Quarter: 2025Q3

REPORT INFORMATION
  Report Type: Spontaneous
  Country: EU (occurrence: EU)
  Receive Date: 20250422
  Receipt Date: 20250809
  Transmission Date: 20251020
  Serious: Yes (Hospitalization, Other)
  Sender: ALEXION PHARMACEUTICALS
  Company Number: EU-AstraZeneca-CH-00850805A

PATIENT
  Sex: Female

DRUGS (1)
  1. SAPHNELO [Suspect]
     Active Substance: ANIFROLUMAB-FNIA
     Indication: Systemic lupus erythematosus
     Route: 065

REACTIONS (6)
  - Electrocardiogram change [Recovering/Resolving]
  - Myocarditis [Recovering/Resolving]
  - Arthralgia [Recovering/Resolving]
  - Myalgia [Unknown]
  - Arrhythmia [Unknown]
  - Respiratory distress [Recovering/Resolving]

NARRATIVE: CASE EVENT DATE: 20250414
